FAERS Safety Report 7968974-X (Version None)
Quarter: 2011Q4

REPORT INFORMATION
  Report Type: 
  Country: None (occurrence: None)
  Receive Date: 20111209
  Receipt Date: 20111201
  Transmission Date: 20120403
  Serious: Yes (Hospitalization)
  Sender: FDA-Public Use
  Company Number: IL-B.I. PHARMACEUTICALS,INC./RIDGEFIELD-2011-AP-00665RI

PATIENT
  Age: 86 Year
  Sex: Female

DRUGS (16)
  1. ELTROXIN (L-THYROXINE) [Concomitant]
     Indication: HYPOTHYROIDISM
     Dosage: 50 MG X1/DAY
  2. IKAPRESS (VERAPAMIL) [Concomitant]
  3. RAMIPRIL [Concomitant]
  4. NOVONORM (REPLAGINIDE) [Concomitant]
  5. BONDORMIN (BROTIZOLAM) [Concomitant]
     Indication: INSOMNIA
  6. LORIVAN [Concomitant]
     Indication: ANXIETY
  7. MAALOX (ANTACID) [Concomitant]
  8. TRAMADOL HCL [Concomitant]
     Dosage: PRN
  9. VABEN (OXAZEPAM) [Concomitant]
     Dosage: PRN
  10. FUSID (FUROSEMIDE) [Concomitant]
     Indication: CARDIAC FAILURE CHRONIC
     Dosage: 40 TO 60 MG X 2/ DAY
     Route: 042
     Dates: start: 20111110
  11. FUSID (FUROSEMIDE) [Concomitant]
     Dosage: 40 TO 60 MG X 2/DAY
     Route: 048
     Dates: start: 20111110
  12. ASPIRIN [Concomitant]
     Indication: ATRIAL FIBRILLATION
     Dosage: X1/DAY
     Route: 048
  13. NEOBLOC (METOPROLOL) [Concomitant]
  14. OMEPRADEX (OMEPRAZOLE) [Concomitant]
  15. PRADAXA [Suspect]
     Indication: ATRIAL FIBRILLATION
     Dosage: 220 MG
     Route: 048
     Dates: start: 20111119, end: 20111122
  16. CALCIUM + VIT D [Concomitant]

REACTIONS (1)
  - PERIPHERAL EMBOLISM [None]
